FAERS Safety Report 16134434 (Version 2)
Quarter: 2019Q2

REPORT INFORMATION
  Report Type: Report from Study
  Country: CA (occurrence: CA)
  Receive Date: 20190329
  Receipt Date: 20190412
  Transmission Date: 20190711
  Serious: Yes (Hospitalization)
  Sender: FDA-Public Use
  Company Number: CA-TAIHO ONCOLOGY  INC-EU-2019-00893

PATIENT
  Age: 74 Year
  Sex: Female
  Weight: 41.8 kg

DRUGS (1)
  1. LONSURF [Suspect]
     Active Substance: TIPIRACIL HYDROCHLORIDE\TRIFLURIDINE
     Indication: COLORECTAL CANCER METASTATIC
     Dosage: CURRENT CYCLE 1 ENDED ON 08/MAR/2019.?CYCLE 2 WAS SCHEDULED TO START ON 25/MAR/2019 BUT WILL BE DELA
     Route: 048
     Dates: start: 20190225, end: 20190308

REACTIONS (3)
  - Decreased immune responsiveness [Unknown]
  - Neutropenia [Unknown]
  - Full blood count decreased [Unknown]

NARRATIVE: CASE EVENT DATE: 20190312
